FAERS Safety Report 7914681-9 (Version None)
Quarter: 2011Q4

REPORT INFORMATION
  Report Type: 
  Country: None (occurrence: None)
  Receive Date: 20111115
  Receipt Date: 20111108
  Transmission Date: 20120403
  Serious: Yes (Other)
  Sender: FDA-Public Use
  Company Number: PHEH2011US009054

PATIENT
  Age: 24 Year
  Sex: Female
  Weight: 56.689 kg

DRUGS (2)
  1. PULMOZYME [Concomitant]
  2. TOBI [Suspect]
     Indication: CYSTIC FIBROSIS
     Dosage: 300 MG, BID, IN A CYCLE OF 28 DAYS ON AND 28 DAYS OFF
     Dates: start: 20110315

REACTIONS (1)
  - UPPER RESPIRATORY TRACT INFECTION [None]
